FAERS Safety Report 7939312-3 (Version None)
Quarter: 2011Q4

REPORT INFORMATION
  Report Type: 
  Country: None (occurrence: None)
  Receive Date: 20111125
  Receipt Date: 20111021
  Transmission Date: 20120403
  Serious: Yes (Other)
  Sender: FDA-Public Use
  Company Number: US-BAYER-2011-100288

PATIENT
  Age: 65 Year
  Sex: Female

DRUGS (1)
  1. SORAFENIB (RAF KINASE INHIBITOR) [Suspect]
     Indication: HEPATIC NEOPLASM MALIGNANT
     Dosage: 400 MG, BID
     Route: 048
     Dates: start: 20110924

REACTIONS (7)
  - GALLBLADDER DISORDER [None]
  - HEAD DISCOMFORT [None]
  - FATIGUE [None]
  - PAIN [None]
  - HEADACHE [None]
  - RASH [None]
  - DECREASED APPETITE [None]
